FAERS Safety Report 21444510 (Version 1)
Quarter: 2022Q4

REPORT INFORMATION
  Report Type: Report from Study
  Country: US (occurrence: US)
  Receive Date: 20221012
  Receipt Date: 20221012
  Transmission Date: 20230113
  Serious: Yes (Hospitalization, Other)
  Sender: FDA-Public Use
  Company Number: US-ABBVIE-4150990

PATIENT
  Age: 76 Year

DRUGS (4)
  1. RINVOQ [Suspect]
     Active Substance: UPADACITINIB
     Indication: Product used for unknown indication
     Dosage: FORM STRENGTH : 15 MILLIGRAM
     Route: 048
  2. Johnson + Johnson Covid-19 Vaccine [Concomitant]
     Indication: COVID-19 immunisation
     Dosage: 1 IN 1 ONCE: FIRST DOSE
     Route: 030
  3. Johnson + Johnson Covid-19 Vaccine [Concomitant]
     Indication: COVID-19 immunisation
     Dosage: 1 IN 1 ONCE; SECOND DOSE
     Route: 030
  4. Johnson + Johnson Covid-19 Vaccine [Concomitant]
     Indication: COVID-19 immunisation
     Dosage: 1 IN 1 ONCE; THIRD DOSE
     Route: 030

REACTIONS (3)
  - Shoulder arthroplasty [Unknown]
  - Cyst [Unknown]
  - Oedema [Unknown]

NARRATIVE: CASE EVENT DATE: 20220801
